FAERS Safety Report 4264750-2 (Version None)
Quarter: 2004Q1

REPORT INFORMATION
  Report Type: 
  Country: None (occurrence: None)
  Receive Date: 20040102
  Receipt Date: 20031224
  Transmission Date: 20041129
  Serious: Yes (Death)
  Sender: FDA-Public Use
  Company Number: 200321872BWH

PATIENT
  Age: 61 Year
  Sex: Male
  Weight: 91.173 kg

DRUGS (2)
  1. DTIC-DOME [Suspect]
     Indication: METASTATIC MALIGNANT MELANOMA
     Dosage: 540 MG, TOTAL DAILY, INTRAVENOUS
     Route: 042
     Dates: start: 20030602, end: 20030728
  2. MDX-010 (UNCODEABLE ^UNCLASSIFIABLE^) [Suspect]
     Dosage: 3 MG/KG, OM, INTRAVENOUS
     Route: 042
     Dates: start: 20030602, end: 20030728

REACTIONS (20)
  - CARDIAC FAILURE [None]
  - CARDIO-RESPIRATORY ARREST [None]
  - CHILLS [None]
  - CIRCULATORY COLLAPSE [None]
  - COAGULOPATHY [None]
  - COMA [None]
  - CORONARY ARTERY ATHEROSCLEROSIS [None]
  - DRUG TOXICITY [None]
  - FATIGUE [None]
  - GENERALISED OEDEMA [None]
  - HEPATIC FAILURE [None]
  - HEPATIC NECROSIS [None]
  - HYPERSENSITIVITY [None]
  - MULTI-ORGAN FAILURE [None]
  - NAUSEA [None]
  - NIGHT SWEATS [None]
  - PUPIL FIXED [None]
  - RENAL FAILURE ACUTE [None]
  - SEPSIS [None]
  - SEPTIC SHOCK [None]
